FAERS Safety Report 20719976 (Version 1)
Quarter: 2022Q2

REPORT INFORMATION
  Report Type: Spontaneous
  Country: IN (occurrence: IN)
  Receive Date: 20220418
  Receipt Date: 20220418
  Transmission Date: 20220721
  Serious: Yes (Death)
  Sender: FDA-Public Use
  Company Number: IN-PFIZER INC-202200543669

PATIENT
  Age: 54 Year
  Sex: Male

DRUGS (1)
  1. LORLATINIB [Suspect]
     Active Substance: LORLATINIB
     Dosage: 100 MG, 1X/DAY
     Route: 048
     Dates: start: 20200829, end: 2020

REACTIONS (2)
  - Death [Fatal]
  - Neoplasm progression [Unknown]

NARRATIVE: CASE EVENT DATE: 20210101
